FAERS Safety Report 7674151-2 (Version None)
Quarter: 2011Q3

REPORT INFORMATION
  Report Type: 
  Country: None (occurrence: None)
  Receive Date: 20110810
  Receipt Date: 20110805
  Transmission Date: 20111222
  Serious: Yes (Other)
  Sender: FDA-Public Use
  Company Number: US-ROXANE LABORATORIES, INC.-2011-RO-01112RO

PATIENT
  Age: 49 Year
  Sex: Male

DRUGS (4)
  1. LOSARTAN POTASSIUM [Suspect]
     Indication: HYPERTENSION
     Dosage: 25 MG
  2. HYDROCHLOROTHIAZIDE [Suspect]
     Indication: HYPERTENSION
     Dosage: 25 MG
  3. AMLODIPINE [Suspect]
     Indication: HYPERTENSION
  4. ATENOLOL [Suspect]
     Indication: HYPERTENSION
     Dosage: 50 MG

REACTIONS (6)
  - ALANINE AMINOTRANSFERASE INCREASED [None]
  - ERECTILE DYSFUNCTION [None]
  - HEADACHE [None]
  - BLOOD PRESSURE DIASTOLIC INCREASED [None]
  - DIZZINESS [None]
  - BLOOD GLUCOSE INCREASED [None]
